FAERS Safety Report 4330377-7 (Version None)
Quarter: 2004Q1

REPORT INFORMATION
  Report Type: 
  Country: None (occurrence: None)
  Receive Date: 20040329
  Receipt Date: 20040316
  Transmission Date: 20041129
  Serious: Yes (Life-Threatening)
  Sender: FDA-Public Use
  Company Number: 04P-122-0254032-00

PATIENT
  Age: 79 Year
  Sex: Male

DRUGS (3)
  1. ISOPTIN [Suspect]
     Indication: ATRIAL FIBRILLATION
     Dosage: 240 MG, 2 IN 1 D, PER ORAL
     Route: 048
  2. METOPROLOL (METOPROLOL) [Suspect]
     Indication: ATRIAL FIBRILLATION
     Dosage: 100 MG, 1 IN 1 D, ORAL
     Route: 048
  3. DIGITOXIN TAB [Suspect]
     Indication: ATRIAL FIBRILLATION
     Dosage: 0.1 MG, 5 IN 1 WK, ORAL
     Route: 048

REACTIONS (5)
  - ATRIOVENTRICULAR BLOCK [None]
  - CARDIAC ARREST [None]
  - CIRCULATORY COLLAPSE [None]
  - DRUG INTERACTION [None]
  - SINOATRIAL BLOCK [None]
